FAERS Safety Report 5228940-4 (Version None)
Quarter: 2007Q1

REPORT INFORMATION
  Report Type: 
  Country: None (occurrence: None)
  Receive Date: 20061201
  Receipt Date: 20060612
  Transmission Date: 20070707
  Serious: No
  Sender: FDA-Public Use
  Company Number: 006789

PATIENT
  Age: 57 Year
  Sex: Male

DRUGS (4)
  1. DIAMOX [Suspect]
     Indication: GLAUCOMA
     Dosage: ORAL
     Route: 048
     Dates: start: 20051201, end: 20060216
  2. LISINOPRIL [Concomitant]
  3. HYDROCHLOROTHIAZIDE [Concomitant]
  4. LOVASTATIN [Concomitant]

REACTIONS (2)
  - BLOOD URINE PRESENT [None]
  - CALCULUS BLADDER [None]
